FAERS Safety Report 6594396-2 (Version None)
Quarter: 2010Q1

REPORT INFORMATION
  Report Type: 
  Country: None (occurrence: None)
  Receive Date: 20100222
  Receipt Date: 20100217
  Transmission Date: 20100710
  Serious: Yes (Hospitalization)
  Sender: FDA-Public Use
  Company Number: A0845502A

PATIENT
  Sex: Male

DRUGS (1)
  1. LOVAZA [Suspect]
     Route: 048
     Dates: end: 20081201

REACTIONS (3)
  - BLADDER CATHETERISATION [None]
  - IMMUNE SYSTEM DISORDER [None]
  - INFECTION [None]
